FAERS Safety Report 17693329 (Version 1)
Quarter: 2020Q2

REPORT INFORMATION
  Report Type: Spontaneous
  Country: CA (occurrence: CA)
  Receive Date: 20200422
  Receipt Date: 20200422
  Transmission Date: 20200714
  Serious: Yes (Hospitalization, Other)
  Sender: FDA-Public Use
  Company Number: CA-PFIZER INC-2020157919

PATIENT
  Age: 50 Year
  Sex: Male

DRUGS (9)
  1. XELJANZ [Suspect]
     Active Substance: TOFACITINIB CITRATE
     Dosage: 5 MG, 2X/DAY
     Route: 048
     Dates: start: 201907, end: 2020
  2. XELJANZ [Suspect]
     Active Substance: TOFACITINIB CITRATE
     Indication: COLITIS ULCERATIVE
     Dosage: 10 MG, 2X/DAY
     Route: 048
     Dates: start: 20190527, end: 201907
  3. IRON [Concomitant]
     Active Substance: IRON
     Dosage: UNK, DAILY
     Route: 048
     Dates: end: 2019
  4. MESALAMINE. [Concomitant]
     Active Substance: MESALAMINE
     Dosage: UNK
     Route: 054
     Dates: start: 201906, end: 2019
  5. APO-PREDNISONE [Concomitant]
     Active Substance: PREDNISONE
     Dosage: 5 MG, DAILY
     Route: 048
     Dates: start: 201905, end: 2019
  6. PREDNISONE. [Concomitant]
     Active Substance: PREDNISONE
     Dosage: 40 MG, FOLLOWED BY A TAPER
     Route: 048
     Dates: start: 201906
  7. CORTIMENT [HYDROCORTISONE ACETATE] [Concomitant]
     Active Substance: HYDROCORTISONE ACETATE
     Dosage: 9 MG, EVERY 2 DAYS
     Dates: start: 201908
  8. ASACOL [Concomitant]
     Active Substance: MESALAMINE
     Indication: COLITIS ULCERATIVE
     Dosage: 3.6 G, DAILY
     Route: 048
     Dates: start: 2019, end: 2019
  9. APO-PREDNISONE [Concomitant]
     Active Substance: PREDNISONE
     Dosage: 10 MG, DAILY
     Route: 048
     Dates: end: 2019

REACTIONS (10)
  - Cryptitis [Unknown]
  - Therapeutic product effect incomplete [Unknown]
  - Abscess intestinal [Unknown]
  - Dysphagia [Unknown]
  - Decreased appetite [Recovered/Resolved]
  - Oral pain [Unknown]
  - Mouth ulceration [Recovering/Resolving]
  - Condition aggravated [Unknown]
  - Blood pressure increased [Unknown]
  - Frustration tolerance decreased [Unknown]
